FAERS Safety Report 9408447 (Version 1)
Quarter: 2013Q3

REPORT INFORMATION
  Report Type: Spontaneous
  Country: US (occurrence: US)
  Receive Date: 20130718
  Receipt Date: 20130718
  Transmission Date: 20140515
  Serious: Yes (Hospitalization, Other)
  Sender: FDA-Public Use
  Company Number: US-UCBSA-091142

PATIENT
  Sex: Female

DRUGS (5)
  1. CIMZIA [Suspect]
     Indication: RHEUMATOID ARTHRITIS
     Dosage: UNKNOWN DOSE
  2. CIMZIA [Suspect]
     Indication: CROHN^S DISEASE
     Dosage: UNKNOWN DOSE
  3. 6-MERCAPTOPURINE [Suspect]
     Dosage: UNKNOWN DOSE
  4. METHOTREXATE [Concomitant]
     Dosage: UNKNOWN DOSE
  5. REMICADE [Concomitant]
     Dosage: UNKNOWN DOSE

REACTIONS (7)
  - Pleural effusion [Recovered/Resolved]
  - Pericardial effusion [Recovered/Resolved]
  - Intestinal resection [Recovering/Resolving]
  - Migraine [Unknown]
  - Abscess [Unknown]
  - Fistula [Unknown]
  - Drug ineffective [Unknown]
